FAERS Safety Report 7575229-4 (Version None)
Quarter: 2011Q2

REPORT INFORMATION
  Report Type: 
  Country: None (occurrence: None)
  Receive Date: 20110627
  Receipt Date: 20110622
  Transmission Date: 20111010
  Serious: Yes (Other)
  Sender: FDA-Public Use
  Company Number: GB-BRISTOL-MYERS SQUIBB COMPANY-15853252

PATIENT
  Age: 55 Year
  Sex: Male

DRUGS (2)
  1. ABILIFY [Suspect]
  2. RISPERIDONE [Concomitant]

REACTIONS (2)
  - PSYCHOTIC DISORDER [None]
  - NAUSEA [None]
